FAERS Safety Report 13058710 (Version 1)
Quarter: 2016Q4

REPORT INFORMATION
  Report Type: Report from Study
  Country: US (occurrence: US)
  Receive Date: 20161223
  Receipt Date: 20161223
  Transmission Date: 20170207
  Serious: Yes (Death, Other)
  Sender: FDA-Public Use
  Company Number: US-GILEAD-2016-0250461

PATIENT
  Age: 71 Year
  Sex: Female

DRUGS (12)
  1. DIGITEK [Concomitant]
     Active Substance: DIGOXIN
  2. MORPHINE [Concomitant]
     Active Substance: MORPHINE
  3. LYRICA [Concomitant]
     Active Substance: PREGABALIN
  4. LANSOPRAZOLE. [Concomitant]
     Active Substance: LANSOPRAZOLE
  5. DIURIL                             /00011801/ [Concomitant]
  6. OFLOXACIN. [Concomitant]
     Active Substance: OFLOXACIN
  7. BUMETANIDE. [Concomitant]
     Active Substance: BUMETANIDE
  8. MIRALAX [Concomitant]
     Active Substance: POLYETHYLENE GLYCOL 3350
  9. AMBRISENTAN [Suspect]
     Active Substance: AMBRISENTAN
     Indication: PRODUCT USED FOR UNKNOWN INDICATION
     Dosage: 10 MG, QD
     Route: 065
  10. POTASSIUM CHLORIDE. [Concomitant]
     Active Substance: POTASSIUM CHLORIDE
  11. SPIRONOLACTONE. [Concomitant]
     Active Substance: SPIRONOLACTONE
  12. SILDENAFIL. [Concomitant]
     Active Substance: SILDENAFIL

REACTIONS (1)
  - Death [Fatal]

NARRATIVE: CASE EVENT DATE: 20161031
